FAERS Safety Report 7576011-4 (Version None)
Quarter: 2011Q2

REPORT INFORMATION
  Report Type: 
  Country: None (occurrence: None)
  Receive Date: 20110628
  Receipt Date: 20110117
  Transmission Date: 20111010
  Serious: Yes (Hospitalization, Other)
  Sender: FDA-Public Use
  Company Number: US-BAYER-201034730NA

PATIENT
  Age: 42 Year
  Sex: Female
  Weight: 57.143 kg

DRUGS (14)
  1. TYLENOL-500 [Concomitant]
  2. ULTRAM [Concomitant]
  3. ERYTHROMYCIN [Concomitant]
  4. NEXIUM [Concomitant]
  5. PROTONIX [Concomitant]
  6. EFFEXOR [Concomitant]
     Indication: DEPRESSION
     Route: 048
  7. DARVOCET [Concomitant]
     Indication: PAIN
     Dosage: UNK UNK, PRN
     Route: 048
     Dates: start: 20080701
  8. FIORICET [Concomitant]
     Indication: HEADACHE
  9. ACIPHEX [Concomitant]
  10. PROZAC [Concomitant]
  11. YASMIN [Suspect]
     Indication: PREMENSTRUAL SYNDROME
     Dosage: UNK
     Route: 048
     Dates: start: 20010101, end: 20051101
  12. FENTANYL [Concomitant]
     Indication: PAIN
  13. IBUPROFEN [Concomitant]
  14. RECUCET [Concomitant]
     Indication: PAIN

REACTIONS (13)
  - OEDEMA PERIPHERAL [None]
  - HIATUS HERNIA [None]
  - THROMBOSIS [None]
  - OESOPHAGITIS [None]
  - MYALGIA [None]
  - CARDIAC ARREST [None]
  - GASTROOESOPHAGEAL REFLUX DISEASE [None]
  - BLINDNESS [None]
  - PAIN [None]
  - CONSTIPATION [None]
  - PULMONARY EMBOLISM [None]
  - DYSPEPSIA [None]
  - GASTRITIS [None]
